FAERS Safety Report 23645908 (Version 1)
Quarter: 2024Q1

REPORT INFORMATION
  Report Type: Spontaneous
  Country: US (occurrence: US)
  Receive Date: 20240319
  Receipt Date: 20240319
  Transmission Date: 20240409
  Serious: Yes (Life-Threatening, Hospitalization, Other)
  Sender: FDA-Public Use
  Company Number: US-LUPIN PHARMACEUTICALS INC.-2024-02125

PATIENT
  Age: 71 Year
  Sex: Male

DRUGS (10)
  1. RIFAMPIN [Suspect]
     Active Substance: RIFAMPIN
     Indication: Psoas abscess
     Dosage: UNK
     Route: 065
  2. RIFAMPIN [Suspect]
     Active Substance: RIFAMPIN
     Indication: Mycobacterial infection
  3. ETHAMBUTOL [Suspect]
     Active Substance: ETHAMBUTOL HYDROCHLORIDE
     Indication: Psoas abscess
     Dosage: UNK
     Route: 065
  4. ETHAMBUTOL [Suspect]
     Active Substance: ETHAMBUTOL HYDROCHLORIDE
     Indication: Mycobacterial infection
  5. ISONIAZID [Suspect]
     Active Substance: ISONIAZID
     Indication: Psoas abscess
     Dosage: UNK
     Route: 065
  6. ISONIAZID [Suspect]
     Active Substance: ISONIAZID
     Indication: Mycobacterial infection
  7. PYRIDOXINE [Suspect]
     Active Substance: PYRIDOXINE
     Indication: Psoas abscess
     Dosage: UNK
     Route: 065
  8. PYRIDOXINE [Suspect]
     Active Substance: PYRIDOXINE
     Indication: Mycobacterial infection
  9. BCG VACCINE [Concomitant]
     Active Substance: BCG VACCINE
     Indication: Transitional cell carcinoma
     Dosage: UNK
     Route: 037
     Dates: start: 2019
  10. METHOTREXATE [Concomitant]
     Active Substance: METHOTREXATE
     Indication: Rheumatoid arthritis
     Dosage: UNK UNK, QD, DAILY
     Route: 065

REACTIONS (4)
  - Respiratory failure [Unknown]
  - Pulmonary embolism [Unknown]
  - Drug ineffective for unapproved indication [Unknown]
  - Off label use [Unknown]
